FAERS Safety Report 23074791 (Version 1)
Quarter: 2023Q4

REPORT INFORMATION
  Report Type: Report from Study
  Country: EG (occurrence: EG)
  Receive Date: 20231017
  Receipt Date: 20231017
  Transmission Date: 20240109
  Serious: Yes (Hospitalization, Other)
  Sender: FDA-Public Use
  Company Number: EG-002147023-NVSC2023EG220875

PATIENT
  Age: 64 Year
  Sex: Male

DRUGS (6)
  1. ENTRESTO [Suspect]
     Active Substance: SACUBITRIL\VALSARTAN
     Indication: Cardiac failure
     Dosage: 1 DOSAGE FORM, BID (STOPPED 3 MONTHS AGO)
     Route: 048
     Dates: start: 20220101
  2. PLAVIX [Concomitant]
     Active Substance: CLOPIDOGREL BISULFATE
     Indication: Transpupillary thermotherapy
     Dosage: 1 DOSAGE FORM, QD
     Route: 065
  3. DAPAGLIFLOZIN [Concomitant]
     Active Substance: DAPAGLIFLOZIN
     Indication: Transpupillary thermotherapy
     Dosage: 1 DOSAGE FORM, QD
     Route: 065
     Dates: start: 20220101
  4. CARVEDILOL [Concomitant]
     Active Substance: CARVEDILOL
     Indication: Transpupillary thermotherapy
     Dosage: 1 DOSAGE FORM, BID
     Route: 065
     Dates: start: 20220101
  5. VASTAREL [Concomitant]
     Active Substance: TRIMETAZIDINE DIHYDROCHLORIDE
     Indication: Transpupillary thermotherapy
     Dosage: 1 DOSAGE FORM, BID
     Route: 065
  6. EPLERENONE [Concomitant]
     Active Substance: EPLERENONE
     Indication: Transpupillary thermotherapy
     Dosage: 1 DOSAGE FORM, QD
     Route: 065
     Dates: start: 20220101

REACTIONS (10)
  - Haemorrhoids [Recovered/Resolved]
  - Anal fistula [Recovered/Resolved]
  - Anal fissure [Recovered/Resolved]
  - Sweat gland disorder [Recovered/Resolved]
  - Pain [Recovered/Resolved]
  - Hypotension [Not Recovered/Not Resolved]
  - Headache [Not Recovered/Not Resolved]
  - Thrombosis [Recovering/Resolving]
  - Pain in extremity [Recovering/Resolving]
  - Tooth fracture [Not Recovered/Not Resolved]

NARRATIVE: CASE EVENT DATE: 20220301
